FAERS Safety Report 8814181 (Version 1)
Quarter: 2012Q4

REPORT INFORMATION
  Report Type: Spontaneous
  Country: US (occurrence: None)
  Receive Date: 20120926
  Receipt Date: 20120926
  Transmission Date: 20130627
  Serious: No
  Sender: FDA-Public Use
  Company Number: None

PATIENT
  Age: 63 Year
  Sex: Female
  Weight: 74.84 kg

DRUGS (1)
  1. DULERA [Suspect]
     Indication: ASTHMA
     Dosage: 2 puffs orally thru spacer  twice daily  po
     Route: 048
     Dates: start: 20120917, end: 20120925

REACTIONS (5)
  - Wheezing [None]
  - Sinus disorder [None]
  - Pharyngeal inflammation [None]
  - Headache [None]
  - Muscle spasms [None]
